FAERS Safety Report 16891355 (Version 3)
Quarter: 2019Q4

REPORT INFORMATION
  Report Type: Spontaneous
  Country: US (occurrence: US)
  Receive Date: 20191007
  Receipt Date: 20191111
  Transmission Date: 20200122
  Serious: Yes (Disabling, Other)
  Sender: FDA-Public Use
  Company Number: US-ALKERMES INC.-ALK-2019-005276

PATIENT
  Age: 40 Year
  Sex: Male

DRUGS (3)
  1. ARISTADA [Suspect]
     Active Substance: ARIPIPRAZOLE LAUROXIL
     Indication: PRODUCT USED FOR UNKNOWN INDICATION
     Dosage: UNK
     Route: 030
     Dates: start: 20191106
  2. ARISTADA [Suspect]
     Active Substance: ARIPIPRAZOLE LAUROXIL
     Dosage: UNK
     Route: 030
  3. ARISTADA [Suspect]
     Active Substance: ARIPIPRAZOLE LAUROXIL
     Dosage: UNK
     Route: 030
     Dates: start: 20190908, end: 20190908

REACTIONS (6)
  - Injection site pain [Recovering/Resolving]
  - Femur fracture [Not Recovered/Not Resolved]
  - Malaise [Recovered/Resolved]
  - Nightmare [Recovered/Resolved]
  - Muscle injury [Not Recovered/Not Resolved]
  - Gait disturbance [Not Recovered/Not Resolved]
